FAERS Safety Report 17049221 (Version 1)
Quarter: 2019Q4

REPORT INFORMATION
  Report Type: Spontaneous
  Country: US (occurrence: US)
  Receive Date: 20191021
  Receipt Date: 20191021
  Transmission Date: 20200122
  Serious: No
  Sender: FDA-Public Use
  Company Number: None

PATIENT
  Age: 42 Year
  Sex: Female

DRUGS (1)
  1. COPAXONE [Suspect]
     Active Substance: GLATIRAMER ACETATE
     Indication: MULTIPLE SCLEROSIS
     Dosage: ?          OTHER ROUTE:PFS?
     Dates: start: 20190923

REACTIONS (3)
  - Rash macular [None]
  - Pruritus [None]
  - Swelling face [None]

NARRATIVE: CASE EVENT DATE: 20190925
